FAERS Safety Report 16768006 (Version 1)
Quarter: 2019Q3

REPORT INFORMATION
  Report Type: Spontaneous
  Country: None (occurrence: GB)
  Receive Date: 20190903
  Receipt Date: 20190903
  Transmission Date: 20191005
  Serious: Yes (Other)
  Sender: FDA-Public Use
  Company Number: GB-MERZ NORTH AMERICA, INC.-19MRZ-00348

PATIENT
  Sex: Male

DRUGS (2)
  1. CLONAZEPAM. [Concomitant]
     Active Substance: CLONAZEPAM
  2. XEOMIN [Suspect]
     Active Substance: INCOBOTULINUMTOXINA
     Indication: TORTICOLLIS
     Dosage: 230 UNITS
     Route: 030
     Dates: start: 20190424, end: 20190424

REACTIONS (12)
  - Dyspnoea [Recovered/Resolved]
  - Peripheral swelling [Recovered/Resolved]
  - Asthenia [Recovered/Resolved]
  - Haematochezia [Recovered/Resolved]
  - Abdominal pain [Recovered/Resolved]
  - Neck pain [Recovered/Resolved]
  - Hypersensitivity [Recovered/Resolved]
  - Dysgeusia [Recovered/Resolved]
  - Cyanosis [Recovered/Resolved]
  - Dysphagia [Recovered/Resolved]
  - Lethargy [Recovered/Resolved]
  - Nausea [Recovered/Resolved]

NARRATIVE: CASE EVENT DATE: 2019
